FAERS Safety Report 15127429 (Version 2)
Quarter: 2018Q3

REPORT INFORMATION
  Report Type: Spontaneous
  Country: US (occurrence: US)
  Receive Date: 20180710
  Receipt Date: 20180803
  Transmission Date: 20181010
  Serious: No
  Sender: FDA-Public Use
  Company Number: US-ALEXION PHARMACEUTICALS INC.-A201808608

PATIENT
  Sex: Female

DRUGS (7)
  1. ASPIRIN                            /00002701/ [Suspect]
     Active Substance: ASPIRIN
     Indication: HAEMOLYSIS
     Dosage: UNK
     Route: 065
  2. SOLIRIS [Suspect]
     Active Substance: ECULIZUMAB
     Indication: PAROXYSMAL NOCTURNAL HAEMOGLOBINURIA
     Dosage: UNK
     Route: 065
  3. ASPIRIN                            /00002701/ [Suspect]
     Active Substance: ASPIRIN
     Indication: FATIGUE
  4. ASPIRIN                            /00002701/ [Suspect]
     Active Substance: ASPIRIN
     Indication: MIGRAINE
  5. FOLIC ACID. [Suspect]
     Active Substance: FOLIC ACID
     Indication: MIGRAINE
  6. FOLIC ACID. [Suspect]
     Active Substance: FOLIC ACID
     Indication: HAEMOLYSIS
     Dosage: UNK
     Route: 065
  7. FOLIC ACID. [Suspect]
     Active Substance: FOLIC ACID
     Indication: FATIGUE

REACTIONS (9)
  - Ear infection [Unknown]
  - Haemolysis [Unknown]
  - Contusion [Unknown]
  - Migraine [Unknown]
  - Scab [Unknown]
  - Fatigue [Unknown]
  - Back pain [Unknown]
  - Nausea [Unknown]
  - Ear haemorrhage [Recovered/Resolved]

NARRATIVE: CASE EVENT DATE: 20180626
